FAERS Safety Report 14693117 (Version 11)
Quarter: 2018Q3

REPORT INFORMATION
  Report Type: Report from Study
  Country: DE (occurrence: DE)
  Receive Date: 20180329
  Receipt Date: 20180906
  Transmission Date: 20181010
  Serious: Yes (Hospitalization, Other)
  Sender: FDA-Public Use
  Company Number: DE-BRISTOL-MYERS SQUIBB COMPANY-BMS-2018-016227

PATIENT
  Age: 84 Year
  Sex: Female

DRUGS (18)
  1. NIVOLUMAB [Suspect]
     Active Substance: NIVOLUMAB
     Indication: MALIGNANT MELANOMA
     Dosage: UNK, Q2WK
     Route: 065
     Dates: start: 20171117, end: 20171117
  2. NIVOLUMAB [Suspect]
     Active Substance: NIVOLUMAB
     Indication: PRODUCT USED FOR UNKNOWN INDICATION
     Dosage: 1 DF, Q2WK
     Route: 065
     Dates: start: 20171214, end: 20171214
  3. CORVATON [Concomitant]
     Active Substance: MOLSIDOMINE
     Indication: ARTERIOSCLEROSIS
     Dosage: 16 MG, UNK
     Route: 048
  4. LERCANIDIPINE [Concomitant]
     Active Substance: LERCANIDIPINE
     Indication: HYPERTENSION
     Dosage: 20 MG, UNK
     Route: 048
  5. PREDNISOLON                        /00016201/ [Concomitant]
     Active Substance: PREDNISOLONE
     Indication: LIPASE INCREASED
     Dosage: 120 MG, DAILY
     Route: 048
     Dates: start: 20180615
  6. CANDESARTAN. [Concomitant]
     Active Substance: CANDESARTAN
     Indication: OSTEOPOROSIS
     Dosage: 32 MG, QD
     Route: 048
  7. EDOXABAN [Concomitant]
     Active Substance: EDOXABAN TOSYLATE
     Indication: PROPHYLAXIS
     Dosage: 1 DF ? 60 UNITS NOS, UNK
     Route: 048
     Dates: start: 20180103
  8. PREDNISOLON                        /00016201/ [Concomitant]
     Active Substance: PREDNISOLONE
     Indication: PROPHYLAXIS
     Dosage: 50 MG, QD
     Route: 048
     Dates: start: 20180322, end: 20180615
  9. PARACETAMOL [Concomitant]
     Active Substance: ACETAMINOPHEN
     Indication: PAIN
     Dosage: 2000 MG, PRN
     Route: 048
     Dates: start: 201710
  10. MOXONIDIN [Concomitant]
     Active Substance: MOXONIDINE
     Indication: HYPERTENSION
     Dosage: 0.2 MG, UNK
     Route: 048
  11. TOREM                              /01036501/ [Concomitant]
     Active Substance: TORSEMIDE
     Indication: HYPERTENSION
     Dosage: 20 MG, UNK
     Route: 048
  12. CARVEDILOL. [Concomitant]
     Active Substance: CARVEDILOL
     Indication: HYPERTENSION
     Dosage: 37.5 MG, QD
     Route: 048
  13. TILIDIN [Concomitant]
     Active Substance: NALOXONE HYDROCHLORIDE\TILIDINE HYDROCHLORIDE
     Indication: OSTEOPOROSIS
     Dosage: 100 MG, UNK
     Route: 048
  14. NIVOLUMAB [Suspect]
     Active Substance: NIVOLUMAB
     Indication: PRODUCT USED FOR UNKNOWN INDICATION
     Dosage: 1 DF, Q2WK
     Route: 065
     Dates: start: 20180208, end: 20180208
  15. NIVOLUMAB [Suspect]
     Active Substance: NIVOLUMAB
     Indication: PRODUCT USED FOR UNKNOWN INDICATION
     Dosage: 1 DF, Q2WK
     Route: 065
     Dates: start: 20180425, end: 20180425
  16. PANTOPRAZOL                        /01263201/ [Concomitant]
     Active Substance: PANTOPRAZOLE
     Indication: PROPHYLAXIS
     Dosage: 20 MG, QD
     Route: 048
  17. NIVOLUMAB [Suspect]
     Active Substance: NIVOLUMAB
     Indication: LUNG NEOPLASM MALIGNANT
     Dosage: 1 DF, Q2WK
     Route: 065
     Dates: start: 20171129, end: 20171129
  18. NIVOLUMAB [Suspect]
     Active Substance: NIVOLUMAB
     Indication: PRODUCT USED FOR UNKNOWN INDICATION
     Dosage: 1 DF, Q2WK
     Route: 065
     Dates: start: 20171228, end: 20171228

REACTIONS (3)
  - Autoimmune pancreatitis [Recovering/Resolving]
  - Autoimmune colitis [Not Recovered/Not Resolved]
  - Atrial fibrillation [Unknown]

NARRATIVE: CASE EVENT DATE: 20180322
